FAERS Safety Report 5736889-3 (Version None)
Quarter: 2008Q2

REPORT INFORMATION
  Report Type: 
  Country: None (occurrence: None)
  Receive Date: 20080509
  Receipt Date: 20080424
  Transmission Date: 20081010
  Serious: Yes (Hospitalization)
  Sender: FDA-Public Use
  Company Number: 2008S1007041

PATIENT
  Age: 76 Year
  Sex: Female

DRUGS (7)
  1. SUNITINIB MALATE (SUNITINIB MALATE) [Suspect]
     Indication: THYROID CANCER
     Dosage: 50 MG; DAILY; 50 MG; DAILY
     Dates: start: 20080313, end: 20080316
  2. SUNITINIB MALATE (SUNITINIB MALATE) [Suspect]
     Indication: THYROID CANCER
     Dosage: 50 MG; DAILY; 50 MG; DAILY
     Dates: start: 20080320
  3. PLAVIX [Suspect]
     Indication: ARTERITIS
     Dosage: DAILY
     Dates: start: 20050101, end: 20080316
  4. VERAPAMIL [Suspect]
     Indication: HYPERTENSION
     Dosage: DAILY
     Dates: start: 19980101, end: 20080316
  5. CEFUROXIME [Concomitant]
  6. AMBROXOL [Concomitant]
  7. EZETIMIBE W/SIMVASTATIN [Concomitant]

REACTIONS (1)
  - HAEMOPTYSIS [None]
